FAERS Safety Report 19490389 (Version 2)
Quarter: 2021Q3

REPORT INFORMATION
  Report Type: Spontaneous
  Country: US (occurrence: US)
  Receive Date: 20210705
  Receipt Date: 20210824
  Transmission Date: 20211014
  Serious: No
  Sender: FDA-Public Use
  Company Number: US-ASTRAZENECA-2021A553605

PATIENT
  Age: 14779 Day
  Sex: Female

DRUGS (1)
  1. PULMICORT FLEXHALER [Suspect]
     Active Substance: BUDESONIDE
     Indication: ATYPICAL PNEUMONIA
     Dosage: 90??G/D, 1 INHALATION TWICE A DAY
     Route: 055
     Dates: start: 20210622

REACTIONS (4)
  - Wheezing [Not Recovered/Not Resolved]
  - Intentional device misuse [Unknown]
  - Device delivery system issue [Unknown]
  - Device malfunction [Unknown]

NARRATIVE: CASE EVENT DATE: 20210622
